FAERS Safety Report 8154162-3 (Version None)
Quarter: 2012Q1

REPORT INFORMATION
  Report Type: 
  Country: None (occurrence: None)
  Receive Date: 20120217
  Receipt Date: 20120217
  Transmission Date: 20120608
  Serious: Yes (Life-Threatening)
  Sender: FDA-Public Use
  Company Number: None

PATIENT
  Age: 65 Year
  Sex: Male
  Weight: 92.5 kg

DRUGS (2)
  1. IMMUNE GLOBULIN (HUMAN) [Suspect]
     Indication: IMMUNODEFICIENCY COMMON VARIABLE
     Dosage: 40 GM ONCE IV
     Route: 042
     Dates: start: 20110217, end: 20110217
  2. IMMUNE GLOBULIN (HUMAN) [Suspect]
     Indication: HEPATITIS C
     Dosage: 40 GM ONCE IV
     Route: 042
     Dates: start: 20110217, end: 20110217

REACTIONS (6)
  - PYREXIA [None]
  - HEART RATE INCREASED [None]
  - CHILLS [None]
  - RESPIRATORY DEPRESSION [None]
  - HYPERTENSION [None]
  - RESPIRATORY RATE INCREASED [None]
